FAERS Safety Report 17097951 (Version 1)
Quarter: 2019Q4

REPORT INFORMATION
  Report Type: Spontaneous
  Country: ES (occurrence: ES)
  Receive Date: 20191202
  Receipt Date: 20191202
  Transmission Date: 20200122
  Serious: Yes (Other)
  Sender: FDA-Public Use
  Company Number: NVSC2019ES054032

PATIENT
  Age: 69 Year
  Sex: Female

DRUGS (2)
  1. PREDNISONE. [Suspect]
     Active Substance: PREDNISONE
     Indication: EOSINOPHILIC LEUKAEMIA
     Dosage: UNK
     Route: 065
     Dates: start: 20170531
  2. MIDOSTAURIN [Suspect]
     Active Substance: MIDOSTAURIN
     Indication: EOSINOPHILIC LEUKAEMIA
     Dosage: UNK
     Route: 065
     Dates: start: 20170531

REACTIONS (2)
  - Eosinophilia [Unknown]
  - Cytopenia [Unknown]
